FAERS Safety Report 4982808-7 (Version None)
Quarter: 2006Q2

REPORT INFORMATION
  Report Type: 
  Country: None (occurrence: None)
  Receive Date: 20060425
  Receipt Date: 20060113
  Transmission Date: 20061013
  Serious: Yes (Death)
  Sender: FDA-Public Use
  Company Number: US-MERCK-0601USA01962

PATIENT
  Age: 63 Year
  Sex: Female
  Weight: 90 kg

DRUGS (30)
  1. VIOXX [Suspect]
     Indication: RHEUMATOID ARTHRITIS
     Route: 048
     Dates: start: 20010418, end: 20031208
  2. GLUCOTROL XL [Concomitant]
     Indication: DIABETES MELLITUS
     Route: 065
  3. EFFEXOR [Concomitant]
     Route: 065
  4. TOPROL-XL [Concomitant]
     Route: 065
  5. METHOTREXATE [Concomitant]
     Indication: RHEUMATOID ARTHRITIS
     Route: 065
     Dates: start: 20000425, end: 20031208
  6. SYNTHROID [Concomitant]
     Indication: HYPOTHYROIDISM
     Route: 065
  7. ZOVIRAX [Concomitant]
     Route: 065
  8. PROPOXYPHENE HYDROCHLORIDE [Concomitant]
     Route: 065
     Dates: start: 19970314, end: 20030221
  9. AMOXICILLIN [Concomitant]
     Route: 065
  10. CLEOCIN HYDROCHLORIDE [Concomitant]
     Route: 065
  11. ZITHROMAX [Concomitant]
     Route: 065
  12. NASONEX [Concomitant]
     Route: 065
  13. ATROVENT [Concomitant]
     Route: 065
  14. ASTELIN [Concomitant]
     Route: 065
  15. CLARITIN [Concomitant]
     Route: 065
  16. CEPHALEXIN HYDROCHLORIDE [Concomitant]
     Route: 065
  17. AVANDIA [Concomitant]
     Route: 065
  18. ALBUTEROL [Concomitant]
     Route: 065
  19. SEREVENT [Concomitant]
     Route: 065
  20. XOPENEX [Concomitant]
     Route: 065
  21. ADVAIR DISKUS 100/50 [Concomitant]
     Route: 065
  22. SINGULAIR [Concomitant]
     Route: 065
  23. PROMETHAZINE W/DM [Concomitant]
     Route: 065
  24. COMPRO [Concomitant]
     Route: 065
  25. PREVACID [Concomitant]
     Route: 065
  26. LOPERAMID [Concomitant]
     Route: 065
  27. PROTONIX [Concomitant]
     Route: 065
  28. FOLIC ACID [Concomitant]
     Route: 065
  29. CELEBREX [Concomitant]
     Route: 065
     Dates: start: 19991223, end: 20000224
  30. TOPROL-XL [Concomitant]
     Route: 065
     Dates: start: 19970627, end: 20031208

REACTIONS (3)
  - DYSPEPSIA [None]
  - OBESITY [None]
  - SUDDEN CARDIAC DEATH [None]
